FAERS Safety Report 22324037 (Version 1)
Quarter: 2023Q2

REPORT INFORMATION
  Report Type: Report from Study
  Country: US (occurrence: None)
  Receive Date: 20230516
  Receipt Date: 20230516
  Transmission Date: 20230722
  Serious: Yes (Death, Life-Threatening, Other)
  Sender: FDA-Public Use
  Company Number: US-ROCHE-3349555

PATIENT

DRUGS (10)
  1. RITUXIMAB [Suspect]
     Active Substance: RITUXIMAB
     Indication: Burkitt^s lymphoma
     Dosage: LAST DOSE ADMINISTERED ON 26/JUL/2014, TOTAL DOSE 800 MG
     Route: 042
     Dates: start: 20140725
  2. FILGRASTIM [Suspect]
     Active Substance: FILGRASTIM
     Indication: Burkitt^s lymphoma
     Dosage: LAST DOSE ADMINISTERED ON 01/AUG/2014, TOTAL DOSE 480 MCG
     Route: 065
     Dates: start: 20140731
  3. FILGRASTIM [Suspect]
     Active Substance: FILGRASTIM
     Dosage: LAST DOSE ADMINISTERED ON 03/AUG/2014, TOTAL DOSE 480 MCG
     Route: 065
     Dates: start: 20140803
  4. CYCLOPHOSPHAMIDE [Suspect]
     Active Substance: CYCLOPHOSPHAMIDE
     Indication: Burkitt^s lymphoma
     Dosage: LAST DOSE ADMINISTERED ON 30/JUL/2014, TOTAL DOSE 1630 MG
     Route: 065
     Dates: start: 20140730
  5. VINCRISTINE [Suspect]
     Active Substance: VINCRISTINE
     Indication: Burkitt^s lymphoma
     Dosage: LAST DOSE ADMINISTERED ON 30/JUL/2014, TOTAL DOSE 3.6 MG
     Route: 065
     Dates: start: 20140726
  6. ETOPOSIDE [Suspect]
     Active Substance: ETOPOSIDE
     Indication: Burkitt^s lymphoma
     Dosage: LAST DOSE ADMINISTERED ON 30/JUL/2014, TOTAL DOSE 324 MG
     Route: 065
     Dates: start: 20140726
  7. DOXORUBICIN [Suspect]
     Active Substance: DOXORUBICIN
     Indication: Burkitt^s lymphoma
     Dosage: LAST DOSE ADMINISTERED ON 30/JUL/2014, TOTAL DOSE 88 MG
     Route: 065
     Dates: start: 20140726
  8. METHOTREXATE [Suspect]
     Active Substance: METHOTREXATE
     Indication: Burkitt^s lymphoma
     Dosage: LAST DOSE ADMINISTERED ON 22/JUL/2014, TOTAL DOSE 12 MG
     Route: 065
     Dates: start: 20140722
  9. METHOTREXATE [Suspect]
     Active Substance: METHOTREXATE
     Dosage: LAST DOSE ADMINISTERED ON 29/JUL/2014, TOTAL DOSE 12 MG
     Route: 065
     Dates: start: 20140729
  10. PREDNISONE [Suspect]
     Active Substance: PREDNISONE
     Indication: Burkitt^s lymphoma
     Dosage: LAST DOSE ADMINISTERED ON 30/JUL/2014, TOTAL DOSE 1300 MG
     Route: 065
     Dates: start: 20140725

REACTIONS (7)
  - Death [Fatal]
  - Pulmonary haemorrhage [Not Recovered/Not Resolved]
  - Febrile neutropenia [Not Recovered/Not Resolved]
  - Hypoxia [Not Recovered/Not Resolved]
  - Sepsis [Not Recovered/Not Resolved]
  - Hypotension [Not Recovered/Not Resolved]
  - Platelet count decreased [Not Recovered/Not Resolved]

NARRATIVE: CASE EVENT DATE: 20140731
